FAERS Safety Report 22009978 (Version 1)
Quarter: 2023Q1

REPORT INFORMATION
  Report Type: Spontaneous
  Country: US (occurrence: US)
  Receive Date: 20230220
  Receipt Date: 20230220
  Transmission Date: 20230418
  Serious: No
  Sender: FDA-Public Use
  Company Number: US-GLAXOSMITHKLINE-US2023AMR023770

PATIENT
  Sex: Female

DRUGS (2)
  1. ZEJULA [Suspect]
     Active Substance: NIRAPARIB
     Indication: Ovarian cancer
     Dosage: 100 MG, QD
     Route: 048
     Dates: start: 202301
  2. ZEJULA [Suspect]
     Active Substance: NIRAPARIB
     Dosage: LOW DOSE
     Route: 048

REACTIONS (5)
  - Nausea [Recovering/Resolving]
  - Blood pressure increased [Unknown]
  - Diarrhoea [Unknown]
  - Constipation [Unknown]
  - Blood pressure fluctuation [Unknown]
